FAERS Safety Report 24206148 (Version 5)
Quarter: 2024Q3

REPORT INFORMATION
  Report Type: Spontaneous
  Country: PT (occurrence: PT)
  Receive Date: 20240813
  Receipt Date: 20240926
  Transmission Date: 20241017
  Serious: Yes (Death, Hospitalization, Other)
  Sender: MYLAN
  Company Number: PT-TEVA-VS-3222375

PATIENT
  Age: 85 Year
  Sex: Female

DRUGS (3)
  1. METHOTREXATE [Suspect]
     Active Substance: METHOTREXATE
     Indication: Pemphigoid
     Dosage: 7.5 MILLIGRAM
     Route: 065
  2. HYDROCHLOROTHIAZIDE [Concomitant]
     Active Substance: HYDROCHLOROTHIAZIDE
     Indication: Hypertension
     Dosage: 12.5 MILLIGRAM
     Route: 065
  3. LOSARTAN [Concomitant]
     Active Substance: LOSARTAN\LOSARTAN POTASSIUM
     Indication: Hypertension
     Dosage: 50 MILLIGRAM
     Route: 065

REACTIONS (9)
  - Toxicity to various agents [Fatal]
  - Enterococcal sepsis [Fatal]
  - Toxic epidermal necrolysis [Fatal]
  - Rhabdomyolysis [Unknown]
  - Acute kidney injury [Unknown]
  - Neutropenia [Unknown]
  - Pancytopenia [Unknown]
  - Folate deficiency [Unknown]
  - Off label use [Unknown]
